FAERS Safety Report 6093613-5 (Version None)
Quarter: 2009Q1

REPORT INFORMATION
  Report Type: 
  Country: None (occurrence: None)
  Receive Date: 20090226
  Receipt Date: 20090213
  Transmission Date: 20090719
  Serious: Yes (Other)
  Sender: FDA-Public Use
  Company Number: PHHY2008IT15219

PATIENT
  Sex: Male

DRUGS (4)
  1. TAREG [Suspect]
     Indication: CARDIAC FAILURE
     Dosage: 1POSOLOGIC UNIT
     Route: 048
     Dates: start: 20080709, end: 20080717
  2. WARFARIN SODIUM [Concomitant]
     Dosage: 5 MG
     Route: 048
  3. LASIX [Concomitant]
     Dosage: 1 POSOLOGIC UNIT
     Route: 048
  4. LANOXIN [Concomitant]
     Dosage: 1 POSOLOGIC UNIT
     Route: 048

REACTIONS (2)
  - HALLUCINATION [None]
  - RESTLESSNESS [None]
